FAERS Safety Report 8161695 (Version 4)
Quarter: 2013Q3

REPORT INFORMATION
  Report Type: Spontaneous
  Country: FR (occurrence: FR)
  Receive Date: 20110929
  Receipt Date: 20130923
  Transmission Date: 20140515
  Serious: Yes (Hospitalization, Other)
  Sender: FDA-Public Use
  Company Number: FR-ALEXION PHARMACEUTICALS INC.-A201101459

PATIENT
  Age: 43 Year
  Sex: Male

DRUGS (12)
  1. SOLIRIS 300MG [Suspect]
     Indication: HAEMOLYTIC URAEMIC SYNDROME
     Dosage: 1200 MG UNK
     Route: 042
     Dates: start: 20110805
  2. SOLIRIS 300MG [Suspect]
     Indication: OFF LABEL USE
     Dosage: UNK
     Dates: start: 20110805
  3. ORACILLINE [Suspect]
     Dosage: 1 MUI BID
     Route: 048
     Dates: start: 201108, end: 20110922
  4. ZELITREX [Suspect]
     Dosage: 250 MG QD
     Route: 048
     Dates: start: 201108, end: 20110922
  5. EUPRESSYL [Suspect]
     Dosage: 60 MG TID
     Route: 048
     Dates: end: 20110922
  6. HYPERIUM [Suspect]
     Dosage: 1 MG BID
     Route: 048
     Dates: end: 20110922
  7. ESIDREX [Suspect]
     Dosage: 25 MG QD
     Route: 048
     Dates: end: 20110922
  8. SPECIAFOLDINE [Concomitant]
  9. TEMERIT [Concomitant]
  10. EUPANTOL [Concomitant]
  11. LASILIX [Concomitant]
  12. LEXOMIL [Concomitant]

REACTIONS (2)
  - Acute generalised exanthematous pustulosis [Recovering/Resolving]
  - Rash maculo-papular [Recovering/Resolving]
